FAERS Safety Report 9367279 (Version 2)
Quarter: 2013Q2

REPORT INFORMATION
  Report Type: Spontaneous
  Country: AU (occurrence: AU)
  Receive Date: 20130625
  Receipt Date: 20130627
  Transmission Date: 20140414
  Serious: Yes (Life-Threatening)
  Sender: FDA-Public Use
  Company Number: AU-VERTEX PHARMACEUTICALS INC-2013-007441

PATIENT
  Age: 52 Year
  Sex: Male
  Weight: 60 kg

DRUGS (3)
  1. INCIVO [Suspect]
     Indication: HEPATITIS C
     Dosage: DECREASED (DOSE AND FREQUENCY UNSPECIFIED) THEN CEASED
     Route: 048
     Dates: start: 20130412, end: 20130614
  2. PEGASYS [Suspect]
     Indication: HEPATITIS C
     Dosage: DECREASED (DOSE AND FREQUENCY UNSPECIFIED) THEN CEASED
     Route: 058
     Dates: start: 20130412, end: 20130614
  3. RIBAVIRIN [Suspect]
     Indication: HEPATITIS C
     Dosage: DECREASED (DOSE AND FREQUENCY UNSPECIFIED) THEN CEASED
     Route: 058
     Dates: start: 20130412, end: 20130614

REACTIONS (1)
  - Neutropenia [Not Recovered/Not Resolved]
